FAERS Safety Report 25379969 (Version 2)
Quarter: 2025Q2

REPORT INFORMATION
  Report Type: Spontaneous
  Country: US (occurrence: US)
  Receive Date: 20250530
  Receipt Date: 20250604
  Transmission Date: 20250717
  Serious: No
  Sender: COHERUS
  Company Number: US-COHERUS BIOSCIENCES, INC-2025-COH-US000463

PATIENT

DRUGS (5)
  1. UDENYCA [Suspect]
     Active Substance: PEGFILGRASTIM-CBQV
     Indication: Prophylaxis
     Route: 058
     Dates: start: 20250408
  2. UDENYCA [Suspect]
     Active Substance: PEGFILGRASTIM-CBQV
     Route: 058
     Dates: start: 20250429
  3. HERCEPTIN [Concomitant]
     Active Substance: TRASTUZUMAB
  4. TAXOTERE [Concomitant]
     Active Substance: DOCETAXEL
  5. PERJETA [Concomitant]
     Active Substance: PERTUZUMAB

REACTIONS (2)
  - Device malfunction [Unknown]
  - Application site pain [Recovered/Resolved]

NARRATIVE: CASE EVENT DATE: 20250521
